FAERS Safety Report 20900740 (Version 1)
Quarter: 2022Q2

REPORT INFORMATION
  Report Type: Spontaneous
  Country: FR (occurrence: FR)
  Receive Date: 20220601
  Receipt Date: 20220601
  Transmission Date: 20220721
  Serious: Yes (Hospitalization, Other)
  Sender: FDA-Public Use
  Company Number: None

PATIENT

DRUGS (3)
  1. SUNOSI [Suspect]
     Active Substance: SOLRIAMFETOL
     Indication: Hypersomnia
     Dosage: 75 MG/J
     Route: 048
     Dates: start: 20211210
  2. SUNOSI [Suspect]
     Active Substance: SOLRIAMFETOL
     Dosage: 37.5MG/J PENDANT UNE SEMAINE
     Route: 048
     Dates: start: 20211204, end: 20211210
  3. SPIKEVAX [Suspect]
     Active Substance: ELASOMERAN
     Indication: COVID-19 immunisation
     Dosage: R1
     Dates: start: 20211210, end: 20220110

REACTIONS (2)
  - Myelitis [Recovering/Resolving]
  - Off label use [Unknown]

NARRATIVE: CASE EVENT DATE: 20211210
